FAERS Safety Report 25477177 (Version 1)
Quarter: 2025Q2

REPORT INFORMATION
  Report Type: Spontaneous
  Country: JP (occurrence: JP)
  Receive Date: 20250625
  Receipt Date: 20250625
  Transmission Date: 20250716
  Serious: Yes (Other)
  Sender: UCB
  Company Number: JP-UCBJ-CD202508084UCBPHAPROD

PATIENT
  Age: 7 Year
  Sex: Female

DRUGS (5)
  1. FINTEPLA [Suspect]
     Active Substance: FENFLURAMINE
     Indication: Lennox-Gastaut syndrome
     Route: 048
     Dates: start: 20250311
  2. FINTEPLA [Suspect]
     Active Substance: FENFLURAMINE
     Dosage: 0.7 MILLIGRAM/KILOGRAM, ONCE DAILY (QD)
     Route: 048
  3. PHENOBARBITAL [Concomitant]
     Active Substance: PHENOBARBITAL
     Indication: Product used for unknown indication
  4. POTASSIUM BROMIDE [Concomitant]
     Active Substance: POTASSIUM BROMIDE
     Indication: Product used for unknown indication
  5. TOPIRAMATE [Concomitant]
     Active Substance: TOPIRAMATE
     Indication: Product used for unknown indication

REACTIONS (2)
  - Pneumonia [Not Recovered/Not Resolved]
  - Epilepsy [Not Recovered/Not Resolved]
